FAERS Safety Report 7128199-7 (Version None)
Quarter: 2010Q4

REPORT INFORMATION
  Report Type: 
  Country: None (occurrence: None)
  Receive Date: 20101130
  Receipt Date: 20101124
  Transmission Date: 20110411
  Serious: Yes (Hospitalization)
  Sender: FDA-Public Use
  Company Number: JP-ALEXION-A201001514

PATIENT
  Age: 73 Year
  Sex: Male

DRUGS (5)
  1. SOLIRIS [Suspect]
     Indication: PAROXYSMAL NOCTURNAL HAEMOGLOBINURIA
     Dosage: 900 MG, Q2W
     Route: 042
     Dates: start: 20080212
  2. INSULIN [Concomitant]
     Dosage: UNK
  3. FOLIAMIN [Concomitant]
     Dosage: UNK
  4. LENDORMIN [Concomitant]
     Dosage: UNK
  5. URSO                               /00465701/ [Concomitant]
     Dosage: UNK

REACTIONS (1)
  - JAUNDICE [None]
